FAERS Safety Report 10027498 (Version 1)
Quarter: 2014Q1

REPORT INFORMATION
  Report Type: Spontaneous
  Country: US (occurrence: US)
  Receive Date: 20140321
  Receipt Date: 20140321
  Transmission Date: 20141002
  Serious: No
  Sender: FDA-Public Use
  Company Number: US-PFIZER INC-2014079981

PATIENT
  Age: 44 Year
  Sex: Female
  Weight: 81.63 kg

DRUGS (9)
  1. ZOLOFT [Suspect]
     Dosage: UNK
  2. SEROQUEL XR [Concomitant]
     Dosage: 250 MG, UNK
  3. ADDERALL [Concomitant]
     Dosage: UNK
  4. FOLIC ACID [Concomitant]
     Dosage: UNK
  5. LEVOTHYROXINE [Concomitant]
     Dosage: UNK
  6. LISINOPRIL [Concomitant]
     Dosage: UNK
  7. XANAX [Concomitant]
     Dosage: 10 MG, 3X/DAY
  8. VITAMIN D [Concomitant]
     Dosage: 50000 UG, WEEKLY
  9. PREDNISONE [Concomitant]
     Dosage: 10 MG, DAILY

REACTIONS (1)
  - Drug ineffective [Unknown]
